FAERS Safety Report 18088871 (Version 1)
Quarter: 2020Q3

REPORT INFORMATION
  Report Type: Spontaneous
  Country: US (occurrence: US)
  Receive Date: 20200729
  Receipt Date: 20200729
  Transmission Date: 20201103
  Serious: Yes (Other)
  Sender: FDA-Public Use
  Company Number: NVSC2020US206849

PATIENT
  Age: 73 Year
  Sex: Male

DRUGS (7)
  1. XTANDI [Interacting]
     Active Substance: ENZALUTAMIDE
     Indication: HORMONE-REFRACTORY PROSTATE CANCER
     Dosage: 160 MG, QD
     Route: 048
     Dates: start: 201906, end: 202001
  2. XTANDI [Interacting]
     Active Substance: ENZALUTAMIDE
     Dosage: 120 MG, QD
     Route: 048
  3. XTANDI [Interacting]
     Active Substance: ENZALUTAMIDE
     Dosage: 120 MG, QD
     Route: 048
     Dates: start: 202001
  4. XTANDI [Interacting]
     Active Substance: ENZALUTAMIDE
     Dosage: 160 MG, QD, EVERY EVENING
     Route: 048
     Dates: start: 20200505
  5. METFORMIN [Suspect]
     Active Substance: METFORMIN HYDROCHLORIDE
     Indication: DIABETES MELLITUS
     Dosage: 500 MG, QD (HALF PILL OF 1000 MG)
     Route: 065
  6. XTANDI [Interacting]
     Active Substance: ENZALUTAMIDE
     Dosage: 160 MG, QD
     Route: 048
     Dates: start: 202004
  7. LUPRON [Concomitant]
     Active Substance: LEUPROLIDE ACETATE
     Indication: PRODUCT USED FOR UNKNOWN INDICATION
     Dosage: STARTED IN DEC
     Route: 065

REACTIONS (23)
  - Hot flush [Recovering/Resolving]
  - Fatigue [Recovering/Resolving]
  - Insomnia [Recovering/Resolving]
  - Pain in extremity [Unknown]
  - Bone pain [Not Recovered/Not Resolved]
  - Mental impairment [Recovering/Resolving]
  - Lethargy [Unknown]
  - Feeling abnormal [Unknown]
  - Somnolence [Unknown]
  - Aphasia [Not Recovered/Not Resolved]
  - Rash [Recovered/Resolved]
  - Acne [Recovered/Resolved]
  - Amnesia [Recovered/Resolved]
  - Fall [Unknown]
  - Arthralgia [Unknown]
  - Speech disorder [Unknown]
  - Diarrhoea [Recovered/Resolved]
  - Anxiety [Unknown]
  - Asthenia [Not Recovered/Not Resolved]
  - Drug intolerance [Unknown]
  - Product availability issue [Unknown]
  - Product dose omission issue [Unknown]
  - Confusional state [Unknown]

NARRATIVE: CASE EVENT DATE: 2019
